FAERS Safety Report 18655522 (Version 1)
Quarter: 2020Q4

REPORT INFORMATION
  Report Type: Report from Study
  Country: IT (occurrence: IT)
  Receive Date: 20201223
  Receipt Date: 20201223
  Transmission Date: 20210114
  Serious: Yes (Other)
  Sender: FDA-Public Use
  Company Number: IT-JNJFOC-20201235202

PATIENT
  Age: 86 Year
  Sex: Male
  Weight: 75 kg

DRUGS (4)
  1. ENANTONE [LEUPRORELIN] [Concomitant]
     Active Substance: LEUPROLIDE ACETATE
     Dosage: 1 VIAL EVERY 12 WEEKS
     Dates: start: 20161102
  2. DIBASE [Concomitant]
     Active Substance: CHOLECALCIFEROL
     Dosage: 1 VIAL ON A BREAD PIECE ONCE A MONTH
     Dates: start: 20161028
  3. APALUTAMIDE [Suspect]
     Active Substance: APALUTAMIDE
     Indication: PROSTATE CANCER
     Route: 048
     Dates: start: 20200826, end: 20201216
  4. ENALAPRIL;HYDROCHLOROTHIAZIDE [Concomitant]
     Active Substance: ENALAPRIL\HYDROCHLOROTHIAZIDE
     Dosage: 20/12.5 MG
     Dates: start: 20190215

REACTIONS (1)
  - Ischaemic stroke [Recovering/Resolving]

NARRATIVE: CASE EVENT DATE: 20201211
